FAERS Safety Report 8889302 (Version 4)
Quarter: 2014Q1

REPORT INFORMATION
  Report Type: Spontaneous
  Country: US (occurrence: US)
  Receive Date: 20121106
  Receipt Date: 20140127
  Transmission Date: 20141002
  Serious: Yes (Other)
  Sender: FDA-Public Use
  Company Number: US-PFIZER INC-2012269269

PATIENT
  Age: 52 Year
  Sex: Female
  Weight: 95.24 kg

DRUGS (2)
  1. LYRICA [Suspect]
     Indication: FIBROMYALGIA
     Dosage: UNK
     Dates: start: 2008, end: 200912
  2. LYRICA [Suspect]
     Dosage: 150 MG, 3X/DAY

REACTIONS (6)
  - Swelling [Unknown]
  - Gait disturbance [Recovering/Resolving]
  - Pain [Recovering/Resolving]
  - Tremor [Recovering/Resolving]
  - Thinking abnormal [Recovering/Resolving]
  - Feeling abnormal [Unknown]
